FAERS Safety Report 24697157 (Version 2)
Quarter: 2025Q1

REPORT INFORMATION
  Report Type: Spontaneous
  Country: JP (occurrence: JP)
  Receive Date: 20241204
  Receipt Date: 20250103
  Transmission Date: 20250409
  Serious: Yes (Other)
  Sender: PFIZER
  Company Number: JP-PFIZER INC-PV202400154960

PATIENT
  Age: 65 Year
  Sex: Female

DRUGS (5)
  1. AZITHROMYCIN DIHYDRATE [Suspect]
     Active Substance: AZITHROMYCIN DIHYDRATE
     Indication: Bronchitis
     Dosage: 500 MG (2 TABLETS), 1X/DAY (TAKEN AFTER DINNER)
     Route: 048
     Dates: start: 20240815, end: 20240816
  2. PITAVASTATIN CALCIUM [Concomitant]
     Active Substance: PITAVASTATIN CALCIUM
     Route: 048
     Dates: start: 20140408
  3. PITAVASTATIN CALCIUM [Concomitant]
     Active Substance: PITAVASTATIN CALCIUM
     Route: 048
     Dates: start: 20240815
  4. DIMEMORFAN PHOSPHATE [Concomitant]
     Active Substance: DIMEMORFAN PHOSPHATE
     Indication: Bronchitis
     Route: 048
     Dates: start: 20240815, end: 20240816
  5. PRANLUKAST [Concomitant]
     Active Substance: PRANLUKAST
     Indication: Bronchitis
     Route: 048
     Dates: start: 20240815, end: 20240816

REACTIONS (2)
  - Colitis [Recovered/Resolved]
  - Off label use [Unknown]

NARRATIVE: CASE EVENT DATE: 20240815
